FAERS Safety Report 5612487-7 (Version None)
Quarter: 2008Q1

REPORT INFORMATION
  Report Type: 
  Country: None (occurrence: None)
  Receive Date: 20080204
  Receipt Date: 20080131
  Transmission Date: 20080703
  Serious: Yes (Death)
  Sender: FDA-Public Use
  Company Number: IE-ASTRAZENECA-2008GB00191

PATIENT
  Age: 36 Year
  Sex: Male

DRUGS (4)
  1. SEROQUEL [Suspect]
     Dosage: FILM COATED
     Route: 048
  2. CYMBALTA [Suspect]
  3. ATIVAN [Suspect]
  4. VIAGRA [Suspect]

REACTIONS (1)
  - DEATH [None]
